FAERS Safety Report 23058524 (Version 1)
Quarter: 2023Q4

REPORT INFORMATION
  Report Type: Report from Study
  Country: US (occurrence: US)
  Receive Date: 20231012
  Receipt Date: 20231012
  Transmission Date: 20240110
  Serious: Yes (Other)
  Sender: FDA-Public Use
  Company Number: US-INCYTE CORPORATION-2023IN010580

PATIENT

DRUGS (1)
  1. JAKAFI [Suspect]
     Active Substance: RUXOLITINIB
     Indication: Chronic graft versus host disease
     Dosage: UNK
     Route: 065

REACTIONS (10)
  - Chronic graft versus host disease [Recovering/Resolving]
  - Arthralgia [Unknown]
  - Bone pain [Unknown]
  - Muscle spasms [Unknown]
  - Dry eye [Unknown]
  - Product availability issue [Unknown]
  - Fatigue [Unknown]
  - Myalgia [Unknown]
  - Rash [Recovered/Resolved]
  - Condition aggravated [Recovering/Resolving]
